FAERS Safety Report 20144257 (Version 5)
Quarter: 2022Q1

REPORT INFORMATION
  Report Type: Other
  Country: CN (occurrence: None)
  Receive Date: 20211203
  Receipt Date: 20220202
  Transmission Date: 20220423
  Serious: Yes (Hospitalization)
  Sender: FDA-Public Use
  Company Number: CN-ROCHE-2966888

PATIENT
  Age: 47 Year
  Sex: Female
  Weight: 87.5 kg

DRUGS (21)
  1. CAPECITABINE [Suspect]
     Active Substance: CAPECITABINE
     Indication: Breast cancer metastatic
     Route: 048
     Dates: start: 20211001, end: 20211021
  2. CAPECITABINE [Suspect]
     Active Substance: CAPECITABINE
     Route: 048
     Dates: start: 20211022, end: 20211111
  3. LAPATINIB [Suspect]
     Active Substance: LAPATINIB
     Indication: Breast cancer metastatic
     Route: 048
     Dates: start: 20211001, end: 20211111
  4. LAPATINIB [Suspect]
     Active Substance: LAPATINIB
     Route: 048
     Dates: start: 20211124, end: 20220113
  5. METHIMAZOLE [Concomitant]
     Active Substance: METHIMAZOLE
     Indication: Hyperthyroidism
     Route: 048
     Dates: start: 202106, end: 20211101
  6. METHIMAZOLE [Concomitant]
     Active Substance: METHIMAZOLE
     Route: 048
     Dates: start: 20211102, end: 20211111
  7. INOSINE [Concomitant]
     Active Substance: INOSINE
     Indication: Hyperthyroidism
     Route: 048
     Dates: start: 202106, end: 20211101
  8. INOSINE [Concomitant]
     Active Substance: INOSINE
     Route: 048
     Dates: start: 20211102, end: 20211111
  9. BATILOL [Concomitant]
     Active Substance: BATILOL
     Dates: start: 20211102, end: 20211111
  10. BATILOL [Concomitant]
     Active Substance: BATILOL
     Route: 048
     Dates: start: 202106, end: 20211101
  11. TELMISARTAN [Concomitant]
     Active Substance: TELMISARTAN
     Indication: Hypertension
     Route: 048
     Dates: start: 202012, end: 20211102
  12. HERBALS [Concomitant]
     Active Substance: HERBALS
     Indication: Lymphoedema
     Dates: start: 20211022, end: 20211111
  13. ADEMETIONINE [Concomitant]
     Active Substance: ADEMETIONINE
     Indication: Blood bilirubin increased
     Dates: start: 20211123, end: 20211129
  14. ADEMETIONINE [Concomitant]
     Active Substance: ADEMETIONINE
     Dates: start: 20211210, end: 20211220
  15. ADEMETIONINE [Concomitant]
     Active Substance: ADEMETIONINE
     Dates: start: 20220111
  16. DIETARY SUPPLEMENT\HERBALS\MILK THISTLE [Concomitant]
     Active Substance: DIETARY SUPPLEMENT\HERBALS\MILK THISTLE
     Dates: start: 20211130, end: 20211208
  17. DIETARY SUPPLEMENT\HERBALS\MILK THISTLE [Concomitant]
     Active Substance: DIETARY SUPPLEMENT\HERBALS\MILK THISTLE
     Dates: start: 20211201, end: 20220110
  18. FUROSEMIDE [Concomitant]
     Active Substance: FUROSEMIDE
     Dates: start: 20211123
  19. SPIRONOLACTONE [Concomitant]
     Active Substance: SPIRONOLACTONE
  20. HERBALS [Concomitant]
     Active Substance: HERBALS
  21. METHIMAZOLE [Concomitant]
     Active Substance: METHIMAZOLE
     Indication: Hyperthyroidism
     Dates: start: 20211208

REACTIONS (1)
  - Generalised oedema [Recovering/Resolving]

NARRATIVE: CASE EVENT DATE: 20211115
